FAERS Safety Report 18107709 (Version 2)
Quarter: 2020Q3

REPORT INFORMATION
  Report Type: Spontaneous
  Country: HR (occurrence: HR)
  Receive Date: 20200803
  Receipt Date: 20200805
  Transmission Date: 20201103
  Serious: Yes (Death)
  Sender: FDA-Public Use
  Company Number: HR-JNJFOC-20200739636

PATIENT
  Age: 79 Year
  Sex: Female
  Weight: 72 kg

DRUGS (6)
  1. ZALDIAR [Concomitant]
     Active Substance: ACETAMINOPHEN\TRAMADOL HYDROCHLORIDE
     Indication: POLYARTHRITIS
     Dosage: DF=37,5 MG OF TRAMADOL CHLORIDE AND 325 MG OF PARACETAMOL
     Route: 048
     Dates: start: 20190813, end: 20200407
  2. NORVASC [Concomitant]
     Active Substance: AMLODIPINE BESYLATE
     Indication: ESSENTIAL HYPERTENSION
     Route: 048
     Dates: start: 20190813, end: 20200407
  3. NORMABEL [Concomitant]
     Active Substance: DIAZEPAM
     Indication: DELUSIONAL DISORDER, UNSPECIFIED TYPE
     Route: 048
     Dates: start: 20190813, end: 20200407
  4. HALOPERIDOL. [Suspect]
     Active Substance: HALOPERIDOL
     Route: 048
     Dates: start: 20200326, end: 20200409
  5. HALOPERIDOL. [Suspect]
     Active Substance: HALOPERIDOL
     Indication: DELUSIONAL DISORDER, UNSPECIFIED TYPE
     Route: 048
     Dates: start: 20191015, end: 20200326
  6. HALOPERIDOL. [Suspect]
     Active Substance: HALOPERIDOL
     Route: 048
     Dates: start: 20190813, end: 20190926

REACTIONS (10)
  - Sluggishness [Fatal]
  - Musculoskeletal stiffness [Fatal]
  - Off label use [Unknown]
  - Dyspnoea [Fatal]
  - Incorrect dose administered [Unknown]
  - Dyskinesia [Fatal]
  - Sudden death [Fatal]
  - Bronchiectasis [Fatal]
  - Altered state of consciousness [Fatal]
  - Decubitus ulcer [Fatal]

NARRATIVE: CASE EVENT DATE: 20200311
